FAERS Safety Report 18009040 (Version 1)
Quarter: 2020Q3

REPORT INFORMATION
  Report Type: Spontaneous
  Country: US (occurrence: US)
  Receive Date: 20200710
  Receipt Date: 20200710
  Transmission Date: 20201103
  Serious: Yes (Hospitalization)
  Sender: FDA-Public Use
  Company Number: US-SAOL THERAPEUTICS-2019SAO00494

PATIENT
  Age: 22 Year
  Sex: Male

DRUGS (2)
  1. LIORESAL [Suspect]
     Active Substance: BACLOFEN
     Dosage: 96.1 ?G, \DAY
     Route: 037
     Dates: end: 20191126
  2. LIORESAL [Suspect]
     Active Substance: BACLOFEN
     Dosage: DOSE DECREASED TO MINIMUM RATE
     Route: 037
     Dates: start: 20191126

REACTIONS (2)
  - Device failure [Recovered/Resolved]
  - Drug withdrawal syndrome [Recovered/Resolved]

NARRATIVE: CASE EVENT DATE: 20191123
